FAERS Safety Report 4360583-7 (Version None)
Quarter: 2004Q2

REPORT INFORMATION
  Report Type: 
  Country: None (occurrence: None)
  Receive Date: 20040519
  Receipt Date: 20040507
  Transmission Date: 20050107
  Serious: Yes (Other)
  Sender: FDA-Public Use
  Company Number: PHEH2004US05099

PATIENT
  Age: 53 Year
  Sex: Female

DRUGS (2)
  1. DIOVAN [Suspect]
     Indication: HYPERTENSION
     Dosage: UNK, QD
     Route: 048
     Dates: start: 20040429
  2. ASPIRIN [Concomitant]

REACTIONS (1)
  - HYPOAESTHESIA [None]
